FAERS Safety Report 17665294 (Version 1)
Quarter: 2020Q2

REPORT INFORMATION
  Report Type: Spontaneous
  Country: US (occurrence: US)
  Receive Date: 20200414
  Receipt Date: 20200414
  Transmission Date: 20200713
  Serious: No
  Sender: FDA-Public Use
  Company Number: US-GLAXOSMITHKLINE-US2020AMR060480

PATIENT
  Sex: Female

DRUGS (1)
  1. NUCALA [Suspect]
     Active Substance: MEPOLIZUMAB
     Indication: EOSINOPHILIA
     Dosage: UNK
     Route: 065
     Dates: start: 201908

REACTIONS (4)
  - Product dose omission [Unknown]
  - Influenza like illness [Unknown]
  - Asthma [Unknown]
  - Social problem [Unknown]

NARRATIVE: CASE EVENT DATE: 202003
